FAERS Safety Report 7861353-5 (Version None)
Quarter: 2011Q4

REPORT INFORMATION
  Report Type: 
  Country: None (occurrence: None)
  Receive Date: 20111027
  Receipt Date: 20111020
  Transmission Date: 20120403
  Serious: Yes (Death)
  Sender: FDA-Public Use
  Company Number: US-AMGEN-USASP2011054537

PATIENT
  Age: 62 Year
  Sex: Female
  Weight: 46.213 kg

DRUGS (1)
  1. NPLATE [Suspect]
     Indication: IDIOPATHIC THROMBOCYTOPENIC PURPURA
     Dosage: 231 MUG, UNK
     Dates: start: 20090527, end: 20101203

REACTIONS (1)
  - DEATH [None]
